FAERS Safety Report 13636884 (Version 1)
Quarter: 2017Q2

REPORT INFORMATION
  Report Type: Spontaneous
  Country: US (occurrence: US)
  Receive Date: 20170531
  Receipt Date: 20170531
  Transmission Date: 20170830
  Serious: No
  Sender: FDA-Public Use
  Company Number: US-ASTELLAS-763652

PATIENT
  Age: 70 Year
  Sex: Female
  Weight: 69.9 kg

DRUGS (17)
  1. METOPROLOL TARTRATE. [Concomitant]
     Active Substance: METOPROLOL TARTRATE
     Route: 048
  2. VITAMIN D3 [Concomitant]
     Active Substance: CHOLECALCIFEROL
     Route: 048
  3. CARBOPLATIN. [Concomitant]
     Active Substance: CARBOPLATIN
     Dosage: 4 CYCLES
     Route: 065
  4. TARCEVA [Suspect]
     Active Substance: ERLOTINIB HYDROCHLORIDE
     Dosage: RESTARTED
     Route: 048
  5. WELLBUTRIN XL [Concomitant]
     Active Substance: BUPROPION HYDROCHLORIDE
     Dosage: SUSTAINED RELEASE 24 HR
     Route: 048
  6. TARCEVA [Suspect]
     Active Substance: ERLOTINIB HYDROCHLORIDE
     Route: 048
  7. LIPITOR [Concomitant]
     Active Substance: ATORVASTATIN CALCIUM
     Dosage: DRUG: ATORVASTATIN CALCIUM
     Route: 048
  8. TARCEVA [Suspect]
     Active Substance: ERLOTINIB HYDROCHLORIDE
     Dosage: DISCONTINUED.
     Route: 048
  9. TARCEVA [Suspect]
     Active Substance: ERLOTINIB HYDROCHLORIDE
     Dosage: DOSE INCREASED
     Route: 048
  10. ZANTAC [Concomitant]
     Active Substance: RANITIDINE HYDROCHLORIDE
     Route: 048
  11. ZANAFLEX [Concomitant]
     Active Substance: TIZANIDINE HYDROCHLORIDE
     Route: 048
  12. TAXOL [Concomitant]
     Active Substance: PACLITAXEL
     Dosage: 4 CYCLES
     Route: 065
  13. TARCEVA [Suspect]
     Active Substance: ERLOTINIB HYDROCHLORIDE
     Indication: NON-SMALL CELL LUNG CANCER
     Route: 048
  14. GLUCOSAMINE [Concomitant]
     Active Substance: GLUCOSAMINE
     Dosage: DRUG: GLUSOCAMINE-MSM COMPLEX(GLUCOS-MSM/VITC/MANG/HRB21)
     Route: 048
  15. LUNESTA [Concomitant]
     Active Substance: ESZOPICLONE
     Dosage: FREQUENCY: 1 TABLET QHS PRN SLEEP
     Route: 048
  16. TYLENOL WITH CODEINE [Concomitant]
     Active Substance: ACETAMINOPHEN\CODEINE PHOSPHATE
     Dosage: FREQUENCY: TAKE 1 PO Q4H PRN PAIN
     Route: 048
  17. TYLENOL [Concomitant]
     Active Substance: ACETAMINOPHEN
     Dosage: FREQUENCY: 2 TABLETS PRN
     Route: 048

REACTIONS (1)
  - Rash [Recovered/Resolved]

NARRATIVE: CASE EVENT DATE: 20100819
